FAERS Safety Report 14332637 (Version 1)
Quarter: 2017Q4

REPORT INFORMATION
  Report Type: Spontaneous
  Country: US (occurrence: US)
  Receive Date: 20171228
  Receipt Date: 20171228
  Transmission Date: 20180321
  Serious: No
  Sender: FDA-Public Use
  Company Number: US-CELGENEUS-USA-20171210255

PATIENT
  Sex: Female

DRUGS (2)
  1. BUPROPION. [Concomitant]
     Active Substance: BUPROPION
     Indication: PSORIASIS
     Dosage: 300 MILLIGRAM
     Route: 048
     Dates: start: 20160812
  2. OTEZLA [Suspect]
     Active Substance: APREMILAST
     Indication: PSORIASIS
     Dosage: 60 MILLIGRAM
     Route: 048
     Dates: start: 20170522

REACTIONS (2)
  - Migraine [Not Recovered/Not Resolved]
  - Drug ineffective [Unknown]

NARRATIVE: CASE EVENT DATE: 2017
